FAERS Safety Report 5341861-1 (Version None)
Quarter: 2007Q2

REPORT INFORMATION
  Report Type: 
  Country: None (occurrence: None)
  Receive Date: 20070601
  Receipt Date: 20070523
  Transmission Date: 20071010
  Serious: Yes (Other)
  Sender: FDA-Public Use
  Company Number: US-JNJFOC-20070506230

PATIENT
  Sex: Female
  Weight: 113.4 kg

DRUGS (9)
  1. TOPAMAX [Suspect]
     Route: 048
  2. TOPAMAX [Suspect]
     Indication: CONVULSION
     Route: 048
  3. TOPAMAX [Suspect]
     Indication: TREMOR
     Route: 048
  4. OXYCONTIN [Concomitant]
     Indication: BACK PAIN
  5. LYRICA [Concomitant]
     Indication: NEURALGIA
  6. LASIX [Concomitant]
     Indication: DIURETIC THERAPY
  7. CYMBALTA [Concomitant]
     Indication: DEPRESSION
  8. THEOPHYLLINE [Concomitant]
     Indication: CHRONIC OBSTRUCTIVE PULMONARY DISEASE
  9. SPIRIVA [Concomitant]
     Indication: CHRONIC OBSTRUCTIVE PULMONARY DISEASE

REACTIONS (2)
  - ABNORMAL BEHAVIOUR [None]
  - DISSOCIATION [None]
